FAERS Safety Report 5794089-5 (Version None)
Quarter: 2008Q2

REPORT INFORMATION
  Report Type: 
  Country: None (occurrence: None)
  Receive Date: 20080625
  Receipt Date: 20080610
  Transmission Date: 20081010
  Serious: Yes (Hospitalization, Other)
  Sender: FDA-Public Use
  Company Number: 2008S1010015

PATIENT
  Age: 65 Year
  Sex: Female
  Weight: 61.6892 kg

DRUGS (17)
  1. ATENOLOL [Suspect]
     Dosage: 50 MG; ORAL
     Route: 048
     Dates: start: 20030722
  2. PLACEBO [Suspect]
     Indication: OSTEOPOROSIS
     Route: 048
     Dates: start: 20020621, end: 20041215
  3. PLACEBO [Suspect]
     Indication: OSTEOPOROSIS
     Route: 048
     Dates: start: 20041218
  4. HYDROCHLOROTHIAZIDE [Concomitant]
  5. POTASSIUM CHLORIDE [Concomitant]
  6. NITROGLYCERIN [Concomitant]
  7. PREDNISONE TAB [Concomitant]
  8. CARTIA XT [Concomitant]
  9. CALCIUM + VITAMIN D [Concomitant]
  10. OXYGEN [Concomitant]
  11. ALBUTEROL [Concomitant]
  12. ATROVENT [Concomitant]
  13. THEOPHYLLINE [Concomitant]
  14. LASIX [Concomitant]
  15. NITROGLYCERIN [Concomitant]
  16. SINGULAIR [Concomitant]
  17. ADVAIR DISKUS 100/50 [Concomitant]

REACTIONS (4)
  - CARDIAC FAILURE CONGESTIVE [None]
  - CHEST PAIN [None]
  - CHRONIC OBSTRUCTIVE PULMONARY DISEASE [None]
  - OEDEMA PERIPHERAL [None]
